FAERS Safety Report 18581490 (Version 1)
Quarter: 2020Q4

REPORT INFORMATION
  Report Type: Spontaneous
  Country: US (occurrence: US)
  Receive Date: 20201204
  Receipt Date: 20201204
  Transmission Date: 20210114
  Serious: No
  Sender: FDA-Public Use
  Company Number: US-TAKEDA-2020TUS055023

PATIENT
  Sex: Male
  Weight: 136.05 kg

DRUGS (13)
  1. GLIPIZIDE. [Concomitant]
     Active Substance: GLIPIZIDE
  2. ALLOPURINOL. [Concomitant]
     Active Substance: ALLOPURINOL
  3. ASPIRIN (E.C.) [Concomitant]
     Active Substance: ASPIRIN
  4. DIPHENHYDRAMINE. [Concomitant]
     Active Substance: DIPHENHYDRAMINE
  5. PRAVASTATIN. [Concomitant]
     Active Substance: PRAVASTATIN
  6. GAMMAGARD LIQUID [Suspect]
     Active Substance: HUMAN IMMUNOGLOBULIN G
     Indication: IMMUNODEFICIENCY COMMON VARIABLE
     Dosage: 50 GRAM, Q4WEEKS
     Route: 042
     Dates: start: 20180520
  7. HYQVIA [Concomitant]
     Active Substance: HUMAN IMMUNOGLOBULIN G\HYALURONIDASE RECOMBINANT HUMAN
  8. EPINEPHRINE. [Concomitant]
     Active Substance: EPINEPHRINE
  9. MYRBETRIQ [Concomitant]
     Active Substance: MIRABEGRON
  10. SODIUM CHLORIDE. [Concomitant]
     Active Substance: SODIUM CHLORIDE
  11. ACETAMINOPHEN. [Concomitant]
     Active Substance: ACETAMINOPHEN
  12. LIDOCAINE. [Concomitant]
     Active Substance: LIDOCAINE
  13. SODIUM [Concomitant]
     Active Substance: SODIUM

REACTIONS (2)
  - Rash [Unknown]
  - Decubitus ulcer [Unknown]
